FAERS Safety Report 14248694 (Version 3)
Quarter: 2018Q1

REPORT INFORMATION
  Report Type: Spontaneous
  Country: US (occurrence: US)
  Receive Date: 20171204
  Receipt Date: 20180219
  Transmission Date: 20180508
  Serious: Yes (Hospitalization, Other)
  Sender: FDA-Public Use
  Company Number: US-PFIZER INC-2017515171

PATIENT
  Age: 60 Year
  Sex: Male

DRUGS (1)
  1. LIDOCAINE HCL [Suspect]
     Active Substance: LIDOCAINE HYDROCHLORIDE
     Dosage: 5 ML, SINGLE (1 TIME INJECTION)
     Route: 008
     Dates: start: 20170622, end: 20170622

REACTIONS (4)
  - Candida infection [Recovered/Resolved]
  - Extradural abscess [Unknown]
  - Back pain [Unknown]
  - Pseudallescheria infection [Recovered/Resolved]

NARRATIVE: CASE EVENT DATE: 20170824
